FAERS Safety Report 24183032 (Version 1)
Quarter: 2024Q3

REPORT INFORMATION
  Report Type: Spontaneous
  Country: US (occurrence: US)
  Receive Date: 20240807
  Receipt Date: 20240807
  Transmission Date: 20241016
  Serious: Yes (Other)
  Sender: MYLAN
  Company Number: US-MYLANLABS-2024M1071778

PATIENT
  Age: 41 Year
  Sex: Male

DRUGS (1)
  1. LITHIUM [Suspect]
     Active Substance: LITHIUM
     Indication: Schizophrenia
     Dosage: UNK (RECEIVING TREATMENT FROM 10 YEARS)
     Route: 065

REACTIONS (4)
  - Nephrogenic diabetes insipidus [Recovering/Resolving]
  - Hyponatraemia [Recovered/Resolved]
  - Seizure [Recovered/Resolved]
  - Urine osmolarity increased [Recovering/Resolving]
